FAERS Safety Report 16598225 (Version 1)
Quarter: 2019Q3

REPORT INFORMATION
  Report Type: Spontaneous
  Country: TW (occurrence: TW)
  Receive Date: 20190719
  Receipt Date: 20190719
  Transmission Date: 20191004
  Serious: Yes (Other)
  Sender: FDA-Public Use
  Company Number: TW-PFIZER INC-2019305261

PATIENT
  Age: 18 Year
  Sex: Female

DRUGS (7)
  1. METHYLPREDNISOLONE. [Suspect]
     Active Substance: METHYLPREDNISOLONE
     Indication: TRANSPLANT REJECTION
     Dosage: EQUIVALENT PREDNISOLONE DOSAGE OF 1250 MG/DAY
  2. PREDNISOLONE. [Suspect]
     Active Substance: PREDNISOLONE
     Dosage: 40 MG, DAILY
  3. METHYLPREDNISOLONE. [Suspect]
     Active Substance: METHYLPREDNISOLONE
     Dosage: EQUIVALENT PREDNISOLONE OF 300 MG/DAY, FOR TWO WEEKS
  4. PREDNISOLONE. [Suspect]
     Active Substance: PREDNISOLONE
     Dosage: TAPERED OFF TO 10 MG/DAY
  5. PREDNISOLONE. [Suspect]
     Active Substance: PREDNISOLONE
     Indication: TRANSPLANT REJECTION
     Dosage: 20 MG, DAILY
  6. METHYLPREDNISOLONE. [Suspect]
     Active Substance: METHYLPREDNISOLONE
     Dosage: EQUIVALENT PREDNISOLONE OF 100 MG/DAY FOR ONE WEEK
  7. PREDNISOLONE. [Suspect]
     Active Substance: PREDNISOLONE
     Dosage: 80 MG, DAILY

REACTIONS (5)
  - Cushingoid [Unknown]
  - Suicidal ideation [Recovered/Resolved]
  - Hypersomnia [Unknown]
  - Leukocytosis [Unknown]
  - Depression [Recovered/Resolved]
